FAERS Safety Report 16896832 (Version 2)
Quarter: 2019Q4

REPORT INFORMATION
  Report Type: Spontaneous
  Country: US (occurrence: US)
  Receive Date: 20191008
  Receipt Date: 20191029
  Transmission Date: 20200122
  Serious: No
  Sender: FDA-Public Use
  Company Number: US-AMGEN-USASP2019165191

PATIENT
  Age: 64 Year
  Sex: Female
  Weight: 76.1 kg

DRUGS (4)
  1. IRINOTECAN [Concomitant]
     Active Substance: IRINOTECAN
     Dosage: 242 MILLIGRAM, CYCLICAL
     Dates: start: 20191002
  2. VECTIBIX [Suspect]
     Active Substance: PANITUMUMAB
     Indication: COLORECTAL CANCER METASTATIC
     Dosage: 452 MILLIGRAM, Q2WK
     Route: 042
     Dates: start: 20191002
  3. FOLINIC ACID [Concomitant]
     Active Substance: LEUCOVORIN
     Indication: COLORECTAL CANCER METASTATIC
     Dosage: UNK, CYCLICAL
     Dates: start: 2019
  4. 5-FU [FLUOROURACIL] [Concomitant]
     Active Substance: FLUOROURACIL
     Indication: COLORECTAL CANCER METASTATIC
     Dosage: 242 MILLIGRAM, CYCLICAL
     Dates: start: 20191002

REACTIONS (3)
  - Chest discomfort [Recovered/Resolved]
  - Dyspnoea [Recovered/Resolved]
  - Infusion related reaction [Unknown]

NARRATIVE: CASE EVENT DATE: 20191002
